FAERS Safety Report 7827060-X (Version None)
Quarter: 2011Q4

REPORT INFORMATION
  Report Type: 
  Country: None (occurrence: None)
  Receive Date: 20111020
  Receipt Date: 20111013
  Transmission Date: 20120403
  Serious: Yes (Other)
  Sender: FDA-Public Use
  Company Number: DE-ASTELLAS-2011EU006191

PATIENT
  Sex: Female
  Weight: 69 kg

DRUGS (6)
  1. NITRENDIPIN [Concomitant]
     Indication: HYPERTENSION
     Dosage: 1 DF, UID/QD
     Route: 065
     Dates: start: 20110916
  2. OLMESARTAN MEDOXOMIL [Concomitant]
     Dosage: UNK
     Route: 065
  3. VESICARE [Suspect]
     Dosage: 5 MG, UID/QD
     Route: 065
     Dates: start: 20110901, end: 20110901
  4. VESICARE [Suspect]
     Indication: URGE INCONTINENCE
     Dosage: 5 MG, UID/QD
     Route: 048
     Dates: start: 20110822, end: 20110830
  5. DEXAMETHASONE [Concomitant]
     Indication: ARTHRITIS
     Dosage: UNK
     Route: 065
     Dates: start: 20110916
  6. VOLTAREN [Concomitant]
     Indication: ARTHRITIS
     Dosage: 1 DF, UNKNOWN/D
     Route: 065
     Dates: start: 20110916

REACTIONS (4)
  - ARTHRALGIA [None]
  - EYELID OEDEMA [None]
  - JOINT SWELLING [None]
  - OEDEMA PERIPHERAL [None]
